FAERS Safety Report 4514253-2 (Version None)
Quarter: 2004Q4

REPORT INFORMATION
  Report Type: 
  Country: None (occurrence: None)
  Receive Date: 20040928
  Receipt Date: 20040625
  Transmission Date: 20050328
  Serious: No
  Sender: FDA-Public Use
  Company Number: 04P-163-0264857-00

PATIENT
  Age: 70 Year
  Sex: Female

DRUGS (7)
  1. HUMIRA [Suspect]
     Indication: RHEUMATOID ARTHRITIS
     Dosage: 40 MG, 1 IN 2 WK, SUBCUTANEOUS
     Route: 058
     Dates: start: 20040610, end: 20040624
  2. IBUPROFEN [Concomitant]
  3. CELECOXIB [Concomitant]
  4. VERAPAMIL [Concomitant]
  5. METFORMIN [Concomitant]
  6. LISINOPRIL [Concomitant]
  7. HYDROCHLOR-TAB [Concomitant]

REACTIONS (5)
  - DIZZINESS [None]
  - INJECTION SITE RASH [None]
  - NAUSEA [None]
  - PRURITUS [None]
  - RASH GENERALISED [None]
